FAERS Safety Report 14150293 (Version 2)
Quarter: 2017Q4

REPORT INFORMATION
  Report Type: Spontaneous
  Country: US (occurrence: US)
  Receive Date: 20171101
  Receipt Date: 20171101
  Transmission Date: 20180321
  Serious: Yes (Other)
  Sender: FDA-Public Use
  Company Number: US-NOVOPROD-561238

PATIENT
  Age: 61 Year
  Sex: Female
  Weight: 62.59 kg

DRUGS (2)
  1. VAGIFEM LD [Suspect]
     Active Substance: ESTRADIOL
     Indication: ATROPHIC VULVOVAGINITIS
     Dosage: 10 ?G, BIW
     Route: 067
     Dates: start: 2008, end: 2013
  2. VAGIFEM [Suspect]
     Active Substance: ESTRADIOL
     Indication: ATROPHIC VULVOVAGINITIS
     Dosage: 25 ?G, BIW
     Route: 067

REACTIONS (1)
  - HER-2 positive breast cancer [Recovered/Resolved]

NARRATIVE: CASE EVENT DATE: 2013
